FAERS Safety Report 25545908 (Version 2)
Quarter: 2025Q3

REPORT INFORMATION
  Report Type: Spontaneous
  Country: JP (occurrence: JP)
  Receive Date: 20250712
  Receipt Date: 20250719
  Transmission Date: 20251021
  Serious: Yes (Death, Other)
  Sender: UNITED THERAPEUTICS
  Company Number: JP-UNITED THERAPEUTICS-UNT-2025-024008

PATIENT
  Age: 49 Year
  Sex: Female

DRUGS (1)
  1. TREPROSTINIL [Suspect]
     Active Substance: TREPROSTINIL
     Indication: Pulmonary hypertension

REACTIONS (2)
  - Pulmonary hypertension [Fatal]
  - Treatment noncompliance [Unknown]
